FAERS Safety Report 8554479 (Version 2)
Quarter: 2013Q1

REPORT INFORMATION
  Report Type: Spontaneous
  Country: DK (occurrence: FR)
  Receive Date: 20120509
  Receipt Date: 20130306
  Transmission Date: 20140127
  Serious: Yes (Life-Threatening, Hospitalization)
  Sender: FDA-Public Use
  Company Number: FR-FRI-1000030395

PATIENT
  Age: 52 Year
  Sex: Female

DRUGS (7)
  1. ESCITALOPRAM [Suspect]
     Indication: MAJOR DEPRESSION
  2. ESPERAL [Suspect]
     Indication: PROPHYLAXIS
     Dates: start: 201105, end: 201106
  3. UTROGESTAN [Suspect]
     Indication: HORMONE REPLACEMENT THERAPY
  4. SERESTA [Concomitant]
     Indication: ANXIETY
  5. LEVOTHYROXINE [Concomitant]
     Indication: HYPOTHYROIDISM
     Dosage: 75 MG
  6. ESTREVA [Concomitant]
     Indication: HORMONE REPLACEMENT THERAPY
     Route: 048
  7. MILNACIPRAN [Concomitant]
     Indication: DEPRESSION

REACTIONS (6)
  - Encephalopathy [Recovered/Resolved with Sequelae]
  - Jaundice [Recovered/Resolved with Sequelae]
  - Liver disorder [Recovered/Resolved with Sequelae]
  - Asterixis [Recovered/Resolved with Sequelae]
  - Hepatic failure [Unknown]
  - Hepatitis acute [Recovered/Resolved with Sequelae]
